FAERS Safety Report 8693784 (Version 2)
Quarter: 2012Q4

REPORT INFORMATION
  Report Type: 
  Country: NO (occurrence: NO)
  Receive Date: 20120731
  Receipt Date: 20121002
  Transmission Date: 20130627
  Serious: Yes (Other)
  Sender: FDA-Public Use
  Company Number: NO-ACCORD-014195

PATIENT
  Age: 24 Year
  Sex: Male

DRUGS (8)
  1. ETOPOSIDE [Suspect]
     Indication: HODGKIN^S LYMPHOMA
     Dosage: 100 (standard) or 200 (escalated) mg/m2 d1-3 q22d
     Route: 042
  2. DOXORUBICIN [Suspect]
     Indication: HODGKIN^S LYMPHOMA
     Dosage: 25 (standard) or 35 (escalated) mg/m2 d1 q22d
     Route: 042
  3. PROCARBAZINE [Suspect]
     Indication: HODGKIN^S LYMPHOMA
     Dosage: 100 mg/m2 d1-7 q22d
     Route: 048
  4. VINCRISTINE [Suspect]
     Indication: HODGKIN^S LYMPHOMA
     Dosage: 1.4 mg/m2 d8 q22d
     Route: 042
  5. PREDNISOLONE [Suspect]
     Indication: HODGKIN^S LYMPHOMA
     Dosage: 40 mg/m2 d1-14 q22d
     Route: 048
  6. BLEOMYCIN [Suspect]
     Indication: HODGKIN^S LYMPHOMA
     Dosage: 10 000IU d8 q22d
     Route: 042
  7. BACTRIM [Concomitant]
     Indication: PNEUMOCYSTIS JIROVECI PROPHYLAXIS
     Route: 065
  8. CYCLOPHOSPHAMIDE [Suspect]
     Indication: HODGKIN^S LYMPHOMA
     Dosage: 650 (standard) or 1250 (escalated) mg/m2 d1 q22d
     Route: 042

REACTIONS (2)
  - Osteonecrosis [Unknown]
  - Off label use [Unknown]
